FAERS Safety Report 9542986 (Version 1)
Quarter: 2013Q2

REPORT INFORMATION
  Report Type: Spontaneous
  Country: US (occurrence: None)
  Receive Date: 20130524
  Receipt Date: 20130524
  Transmission Date: 20140414
  Serious: No
  Sender: FDA-Public Use
  Company Number: PHEH2013US001176

PATIENT
  Age: 63 Year
  Sex: Male

DRUGS (7)
  1. GILENYA [Suspect]
     Indication: MULTIPLE SCLEROSIS
     Route: 048
     Dates: start: 20121029
  2. FAMOTIDINE (FAMOTIDINE) [Concomitant]
  3. SYNTHROID (LEVOTHYROXINE SODIUM) [Concomitant]
  4. LIPITOR (ATORVASTATIN) [Concomitant]
  5. PROVIGIL (MODAFINIL) [Concomitant]
  6. DIOVAN (VALSARTAN) [Concomitant]
  7. TAMSULOSIN (TAMSULOSIN) [Concomitant]

REACTIONS (5)
  - Irritable bowel syndrome [None]
  - Constipation [None]
  - Diarrhoea [None]
  - White blood cell count decreased [None]
  - Lymphocyte count decreased [None]
